FAERS Safety Report 5508352-6 (Version None)
Quarter: 2007Q4

REPORT INFORMATION
  Report Type: 
  Country: None (occurrence: None)
  Receive Date: 20071106
  Receipt Date: 20071101
  Transmission Date: 20080405
  Serious: No
  Sender: FDA-Public Use
  Company Number: JP-MERCK-0705USA05444

PATIENT
  Age: 39 Year
  Sex: Male

DRUGS (3)
  1. PROPECIA [Suspect]
     Indication: MALE PATTERN BALDNESS
     Route: 048
     Dates: start: 20061220, end: 20070101
  2. PROPECIA [Suspect]
     Route: 048
     Dates: start: 20070101, end: 20070524
  3. ALLOPURINOL [Suspect]
     Indication: HYPERURICAEMIA
     Route: 048
     Dates: start: 20061127, end: 20070324

REACTIONS (1)
  - CHEST PAIN [None]
